FAERS Safety Report 15595767 (Version 5)
Quarter: 2018Q4

REPORT INFORMATION
  Report Type: Report from Study
  Country: US (occurrence: US)
  Receive Date: 20181107
  Receipt Date: 20181205
  Transmission Date: 20190205
  Serious: Yes (Life-Threatening, Hospitalization, Other)
  Sender: FDA-Public Use
  Company Number: US-AMGEN INC.-USASL2018155648

PATIENT
  Age: 44 Year
  Sex: Female

DRUGS (1)
  1. AIMOVIG [Suspect]
     Active Substance: ERENUMAB-AOOE
     Indication: MIGRAINE
     Dosage: 70 MG, QMO
     Route: 058
     Dates: start: 20180614

REACTIONS (16)
  - Fall [Unknown]
  - Rib fracture [Unknown]
  - Exostosis [Unknown]
  - Post-traumatic headache [Unknown]
  - Contusion [Not Recovered/Not Resolved]
  - Oral contusion [Unknown]
  - Bipolar disorder [Unknown]
  - Intervertebral disc degeneration [Unknown]
  - Dyspnoea [Unknown]
  - Mobility decreased [Unknown]
  - Ligament sprain [Unknown]
  - Skin pressure mark [Unknown]
  - Unevaluable event [Unknown]
  - Neuropathy peripheral [Unknown]
  - Adverse event [Unknown]
  - Eye contusion [Unknown]

NARRATIVE: CASE EVENT DATE: 2018
